FAERS Safety Report 17948108 (Version 1)
Quarter: 2020Q2

REPORT INFORMATION
  Report Type: Spontaneous
  Country: US (occurrence: US)
  Receive Date: 20200625
  Receipt Date: 20200625
  Transmission Date: 20200714
  Serious: No
  Sender: FDA-Public Use
  Company Number: None

PATIENT
  Age: 51 Year
  Sex: Female
  Weight: 62 kg

DRUGS (1)
  1. CEFTRIAXONE SOLUTION FOR INJECTION [Suspect]
     Active Substance: CEFTRIAXONE
     Indication: POST PROCEDURAL INFECTION
     Route: 042
     Dates: start: 20200603, end: 20200622

REACTIONS (4)
  - Rash [None]
  - Pyrexia [None]
  - Musculoskeletal stiffness [None]
  - Lymphadenopathy [None]

NARRATIVE: CASE EVENT DATE: 20200622
